FAERS Safety Report 8152192-9 (Version None)
Quarter: 2012Q1

REPORT INFORMATION
  Report Type: 
  Country: None (occurrence: None)
  Receive Date: 20120215
  Receipt Date: 20120215
  Transmission Date: 20120608
  Serious: Yes (Hospitalization, Other)
  Sender: FDA-Public Use
  Company Number: None

PATIENT
  Age: 9 Month
  Sex: Male
  Weight: 11 kg

DRUGS (1)
  1. AVEENO BABY CALMING COMFORT BABY LOTION [Suspect]
     Indication: THERAPEUTIC SKIN CARE TOPICAL
     Dosage: DAILY, TOPICAL
     Route: 061
     Dates: start: 20111101

REACTIONS (3)
  - STAPHYLOCOCCAL INFECTION [None]
  - ANTIBIOTIC RESISTANT STAPHYLOCOCCUS TEST POSITIVE [None]
  - ULCER [None]
